FAERS Safety Report 16214400 (Version 2)
Quarter: 2020Q3

REPORT INFORMATION
  Report Type: Report from Study
  Country: None (occurrence: CA)
  Receive Date: 20190418
  Receipt Date: 20200708
  Transmission Date: 20201102
  Serious: Yes (Other)
  Sender: FDA-Public Use
  Company Number: CA-ABBVIE-19K-028-2696696-00

PATIENT
  Age: 42 Year
  Sex: Male

DRUGS (12)
  1. 6?MERCAPTOPURINE [Concomitant]
     Active Substance: MERCAPTOPURINE
     Indication: COLITIS ULCERATIVE
     Route: 048
     Dates: start: 201901
  2. 5?ASA [Concomitant]
     Active Substance: MESALAMINE
     Indication: PRODUCT USED FOR UNKNOWN INDICATION
  3. XELJANZ [Suspect]
     Active Substance: TOFACITINIB CITRATE
     Indication: COLITIS ULCERATIVE
     Route: 048
     Dates: start: 201902
  4. CORTIMENT (HYDROCORTISONE) [Concomitant]
     Active Substance: HYDROCORTISONE
     Route: 065
     Dates: start: 2019
  5. PURINETHOL [Concomitant]
     Active Substance: MERCAPTOPURINE
     Indication: PRODUCT USED FOR UNKNOWN INDICATION
  6. 6?MERCAPTOPURINE [Concomitant]
     Active Substance: MERCAPTOPURINE
     Dates: end: 201901
  7. PREDNISONE. [Concomitant]
     Active Substance: PREDNISONE
     Indication: PRODUCT USED FOR UNKNOWN INDICATION
  8. VEDOLIZUMAB [Concomitant]
     Active Substance: VEDOLIZUMAB
     Indication: PRODUCT USED FOR UNKNOWN INDICATION
     Dates: start: 2018
  9. HUMIRA [Suspect]
     Active Substance: ADALIMUMAB
     Indication: PRODUCT USED FOR UNKNOWN INDICATION
     Route: 058
     Dates: start: 2017, end: 2018
  10. VEDOLIZUMAB [Suspect]
     Active Substance: VEDOLIZUMAB
     Indication: COLITIS ULCERATIVE
     Route: 042
     Dates: start: 2018
  11. CORTIMENT (HYDROCORTISONE) [Concomitant]
     Active Substance: HYDROCORTISONE
     Indication: COLITIS ULCERATIVE
     Dates: start: 201901, end: 2019
  12. 6?MERCAPTOPURINE [Concomitant]
     Active Substance: MERCAPTOPURINE
     Dates: end: 201901

REACTIONS (8)
  - Colitis [Unknown]
  - Colon neoplasm [Unknown]
  - Therapeutic product effect decreased [Unknown]
  - Anal incontinence [Unknown]
  - Frequent bowel movements [Unknown]
  - Loss of personal independence in daily activities [Unknown]
  - Pseudopolyp [Unknown]
  - Diarrhoea haemorrhagic [Unknown]

NARRATIVE: CASE EVENT DATE: 2018
